FAERS Safety Report 16884229 (Version 5)
Quarter: 2020Q1

REPORT INFORMATION
  Report Type: Spontaneous
  Country: ES (occurrence: ES)
  Receive Date: 20191004
  Receipt Date: 20200108
  Transmission Date: 20200409
  Serious: Yes (Other)
  Sender: FDA-Public Use
  Company Number: ES-TEVA-2019-ES-1117483

PATIENT
  Age: 62 Year
  Sex: Female
  Weight: 54 kg

DRUGS (1)
  1. ENALAPRIL (2142A) [Suspect]
     Active Substance: ENALAPRIL
     Indication: HYPERTENSION
     Dosage: 10 MG, Q24H
     Route: 048
     Dates: start: 20190430, end: 201906

REACTIONS (1)
  - Colitis microscopic [Recovered/Resolved]

NARRATIVE: CASE EVENT DATE: 201905
